FAERS Safety Report 9948067 (Version 1)
Quarter: 2014Q1

REPORT INFORMATION
  Report Type: Spontaneous
  Country: US (occurrence: None)
  Receive Date: 20140122
  Receipt Date: 20140122
  Transmission Date: 20141002
  Serious: No
  Sender: FDA-Public Use
  Company Number: AP356-00289-SPO-US

PATIENT
  Age: 40 Year
  Sex: Female
  Weight: 79.4 kg

DRUGS (1)
  1. BELVIQ (LORCASERIN HYDROCHLORIDE) [Suspect]
     Indication: WEIGHT CONTROL
     Route: 048
     Dates: start: 201306, end: 201309

REACTIONS (2)
  - Dry mouth [None]
  - Drug effect decreased [None]
